FAERS Safety Report 8793271 (Version 1)
Quarter: 2012Q4

REPORT INFORMATION
  Report Type: 
  Country: US (occurrence: US)
  Receive Date: 20120917
  Receipt Date: 20120917
  Transmission Date: 20130627
  Serious: Yes (Hospitalization, Disabling, Other)
  Sender: FDA-Public Use
  Company Number: US-009507513-1201USA02545

PATIENT

DRUGS (6)
  1. FOSAMAX [Suspect]
     Indication: OSTEOPOROSIS
     Dosage: 10 mg, qd
     Route: 048
     Dates: start: 199911, end: 200104
  2. FOSAMAX [Suspect]
     Dosage: 70 mg, QW
     Route: 048
     Dates: start: 200105, end: 200806
  3. ALENDRONATE SODIUM [Suspect]
     Indication: OSTEOPOROSIS
     Dosage: 70 mg, QW
     Route: 048
     Dates: start: 20080716, end: 201002
  4. FLONASE [Concomitant]
     Route: 055
     Dates: start: 200206
  5. VITAMIN D (UNSPECIFIED) [Concomitant]
     Dosage: 200-1000
     Route: 048
     Dates: start: 1999
  6. TETRACYCLINE [Concomitant]
     Indication: ACNE
     Dates: start: 1980

REACTIONS (20)
  - Femur fracture [Not Recovered/Not Resolved]
  - Low turnover osteopathy [Not Recovered/Not Resolved]
  - Tonsillar disorder [Unknown]
  - Deafness [Unknown]
  - Uterine disorder [Unknown]
  - Fall [Unknown]
  - Fracture delayed union [Unknown]
  - Fracture delayed union [Recovered/Resolved]
  - Diverticulum intestinal [Unknown]
  - Eczema [Unknown]
  - Osteoarthritis [Unknown]
  - Otitis media [Unknown]
  - Pelvic mass [Unknown]
  - Sinusitis [Unknown]
  - Inappropriate schedule of drug administration [Unknown]
  - Osteopenia [Unknown]
  - Wound [Unknown]
  - Spinal osteoarthritis [Unknown]
  - Renal cyst [Unknown]
  - Blood calcium decreased [Unknown]
